FAERS Safety Report 10365187 (Version 1)
Quarter: 2014Q3

REPORT INFORMATION
  Report Type: Spontaneous
  Country: GB (occurrence: GB)
  Receive Date: 20140806
  Receipt Date: 20140806
  Transmission Date: 20150326
  Serious: Yes (Other)
  Sender: FDA-Public Use
  Company Number: PHHY2014GB094282

PATIENT
  Age: 33 Year
  Sex: Female

DRUGS (4)
  1. FENTANYL. [Suspect]
     Active Substance: FENTANYL
     Indication: ANALGESIC THERAPY
     Dosage: 2 UG/ML, UNK
     Route: 008
  2. LEVOBUPIVACAINE [Suspect]
     Active Substance: LEVOBUPIVACAINE
     Indication: ANALGESIC THERAPY
     Dosage: 0.5% LEVOBUPIVACAINE 10ML
     Route: 008
  3. LIDOCAINE. [Suspect]
     Active Substance: LIDOCAINE
     Indication: ANALGESIC THERAPY
     Dosage: TOTAL 20 ML 2% LIGNOCAINE, OVER 5 MIN
     Route: 008
  4. BUPIVACAINE [Suspect]
     Active Substance: BUPIVACAINE
     Indication: ANALGESIC THERAPY
     Dosage: 15 ML OF 0.1% PLAIN BUPIVACAINE
     Route: 008

REACTIONS (9)
  - Cardiac arrest [Recovering/Resolving]
  - Drug effect incomplete [Unknown]
  - Grip strength decreased [Unknown]
  - Maternal exposure during pregnancy [Unknown]
  - Dyspnoea [Unknown]
  - Cyanosis [Unknown]
  - Cardiac output decreased [Unknown]
  - Sensory loss [Unknown]
  - Neuromuscular block prolonged [Recovering/Resolving]
